FAERS Safety Report 7223862-1 (Version None)
Quarter: 2011Q1

REPORT INFORMATION
  Report Type: 
  Country: None (occurrence: None)
  Receive Date: 20110112
  Receipt Date: 20110105
  Transmission Date: 20110831
  Serious: Yes (Hospitalization, Other)
  Sender: FDA-Public Use
  Company Number: US-ELI_LILLY_AND_COMPANY-US201011002189

PATIENT
  Sex: Male
  Weight: 122 kg

DRUGS (3)
  1. HUMALOG [Suspect]
     Indication: TYPE 2 DIABETES MELLITUS
     Dosage: 50 U, OTHER
     Dates: start: 19900101
  2. LANTUS [Concomitant]
  3. HUMALOG [Suspect]
     Dosage: 50 U, OTHER
     Dates: start: 19900101

REACTIONS (5)
  - MYOCARDIAL INFARCTION [None]
  - VISUAL IMPAIRMENT [None]
  - CATARACT [None]
  - STENT MALFUNCTION [None]
  - MEMORY IMPAIRMENT [None]
